FAERS Safety Report 6927485-0 (Version None)
Quarter: 2010Q3

REPORT INFORMATION
  Report Type: 
  Country: None (occurrence: None)
  Receive Date: 20100812
  Receipt Date: 20100728
  Transmission Date: 20110219
  Serious: Yes (Death, Hospitalization, Other)
  Sender: FDA-Public Use
  Company Number: 2010002651

PATIENT
  Age: 47 Year
  Sex: Female

DRUGS (4)
  1. ERLOTINIB HYDROCHLORIDE [Suspect]
     Indication: BREAST CANCER METASTATIC
     Dosage: 100 MG, QD, ORAL
     Route: 048
     Dates: start: 20090621, end: 20091123
  2. BEVACIZUMAB [Suspect]
     Indication: BREAST CANCER METASTATIC
     Dosage: 500 MG, INTRAVENOUS
     Route: 042
     Dates: start: 20091208
  3. BENDAMUSTINE (BENDAMUSTINE) [Suspect]
     Indication: BREAST CANCER METASTATIC
     Dosage: 120 MG/M2, INTRAVENOUS
     Route: 042
     Dates: start: 20090616, end: 20091104
  4. PACLITAXEL [Suspect]
     Indication: BREAST CANCER METASTATIC
     Dosage: 135 MG, INTRAVENOUS
     Route: 042
     Dates: start: 20091208

REACTIONS (13)
  - ALANINE AMINOTRANSFERASE INCREASED [None]
  - ASPARTATE AMINOTRANSFERASE INCREASED [None]
  - DISEASE PROGRESSION [None]
  - DYSPNOEA [None]
  - DYSPNOEA EXERTIONAL [None]
  - FATIGUE [None]
  - LYMPHOPENIA [None]
  - MULTI-ORGAN FAILURE [None]
  - PERTUSSIS [None]
  - PNEUMOCYSTIS JIROVECI INFECTION [None]
  - PNEUMONIA [None]
  - PULMONARY OEDEMA [None]
  - TRANSAMINASES INCREASED [None]
